FAERS Safety Report 4387409-X (Version None)
Quarter: 2004Q2

REPORT INFORMATION
  Report Type: 
  Country: None (occurrence: None)
  Receive Date: 20040630
  Receipt Date: 20040422
  Transmission Date: 20050107
  Serious: No
  Sender: FDA-Public Use
  Company Number: US-GLAXOSMITHKLINE-A0508071A

PATIENT
  Age: 23 Year
  Sex: Female

DRUGS (3)
  1. ADVAIR HFA [Suspect]
     Indication: ASTHMA
     Dosage: 1PUFF TWICE PER DAY
     Route: 055
     Dates: start: 20040228
  2. ALBUTEROL [Concomitant]
  3. TUSSIN COUGH SYRUP [Concomitant]

REACTIONS (2)
  - DYSGEUSIA [None]
  - MOUTH PLAQUE [None]
